FAERS Safety Report 9767311 (Version 3)
Quarter: 2015Q2

REPORT INFORMATION
  Report Type: Spontaneous
  Country: US (occurrence: US)
  Receive Date: 20131217
  Receipt Date: 20150616
  Transmission Date: 20150821
  Serious: Yes (Congenital Anomaly, Other)
  Sender: FDA-Public Use
  Company Number: US-ELI_LILLY_AND_COMPANY-US201312003333

PATIENT
  Sex: Female

DRUGS (3)
  1. DOXYCLIN                           /00055702/ [Concomitant]
     Route: 064
  2. ALBUTEROL                          /00139501/ [Concomitant]
     Active Substance: ALBUTEROL
     Route: 064
  3. PROZAC [Suspect]
     Active Substance: FLUOXETINE HYDROCHLORIDE
     Indication: DEPRESSION
     Dosage: 1 DF, UNKNOWN
     Route: 064

REACTIONS (4)
  - Premature baby [Recovered/Resolved]
  - Foetal exposure timing unspecified [Recovered/Resolved]
  - Gastroschisis [Recovering/Resolving]
  - Oligohydramnios [Recovered/Resolved]
